FAERS Safety Report 8108923-7 (Version None)
Quarter: 2012Q1

REPORT INFORMATION
  Report Type: 
  Country: None (occurrence: None)
  Receive Date: 20120202
  Receipt Date: 20120124
  Transmission Date: 20120608
  Serious: Yes (Hospitalization)
  Sender: FDA-Public Use
  Company Number: JP-GLAXOSMITHKLINE-B0776514A

PATIENT
  Age: 74 Year
  Sex: Female

DRUGS (2)
  1. UNKNOWN DRUG [Concomitant]
     Route: 048
     Dates: end: 20120118
  2. FLUTICASONE PROPIONATE/SALMETEROL [Suspect]
     Indication: ASTHMA
     Dosage: 500MCG PER DAY
     Route: 055

REACTIONS (2)
  - TREMOR [None]
  - PNEUMONIA [None]
